FAERS Safety Report 4925722-5 (Version None)
Quarter: 2006Q1

REPORT INFORMATION
  Report Type: 
  Country: None (occurrence: None)
  Receive Date: 20060228
  Receipt Date: 20050131
  Transmission Date: 20060701
  Serious: No
  Sender: FDA-Public Use
  Company Number: US-GLAXOSMITHKLINE-A0543062A

PATIENT
  Age: 56 Year
  Sex: Male

DRUGS (6)
  1. LAMICTAL [Suspect]
     Indication: DEPRESSION
     Dosage: 25MG THREE TIMES PER DAY
     Route: 048
     Dates: start: 20041101
  2. WELLBUTRIN [Suspect]
     Indication: DEPRESSION
     Dosage: 100MG PER DAY
     Route: 048
     Dates: start: 20050125
  3. ATIVAN [Concomitant]
  4. KLONOPIN [Concomitant]
  5. ZYPREXA [Concomitant]
  6. CYMBALTA [Concomitant]

REACTIONS (3)
  - DEPRESSION [None]
  - MORBID THOUGHTS [None]
  - SEXUAL DYSFUNCTION [None]
